FAERS Safety Report 7210533-0 (Version None)
Quarter: 2011Q1

REPORT INFORMATION
  Report Type: 
  Country: None (occurrence: None)
  Receive Date: 20110105
  Receipt Date: 20101229
  Transmission Date: 20110831
  Serious: Yes (Death, Hospitalization)
  Sender: FDA-Public Use
  Company Number: US-CELGENEUS-163-21880-10120769

PATIENT
  Sex: Female

DRUGS (12)
  1. POTASSIUM CHLORIDE [Concomitant]
     Route: 065
  2. REVLIMID [Suspect]
     Indication: MULTIPLE MYELOMA
     Route: 048
     Dates: start: 20100805, end: 20100101
  3. HYDROCHLOROTHIAZIDE [Concomitant]
     Route: 065
  4. CA W/D [Concomitant]
     Route: 065
  5. LASIX [Concomitant]
     Route: 065
  6. TRAMADOL [Concomitant]
     Route: 065
  7. NAUSEA PILLS [Concomitant]
     Route: 065
  8. NIFEDIPINE [Concomitant]
     Route: 065
  9. MYCELEX [Concomitant]
     Route: 065
  10. FOSAMAX [Concomitant]
     Route: 065
  11. COLACE [Concomitant]
     Route: 065
  12. LORATADINE [Concomitant]
     Route: 065

REACTIONS (1)
  - MULTIPLE MYELOMA [None]
